FAERS Safety Report 23502008 (Version 1)
Quarter: 2024Q1

REPORT INFORMATION
  Report Type: Spontaneous
  Country: US (occurrence: US)
  Receive Date: 20240208
  Receipt Date: 20240208
  Transmission Date: 20240410
  Serious: Yes (Other)
  Sender: FDA-Public Use
  Company Number: US-ORGANON-O2402USA000566

PATIENT
  Age: 15 Year
  Sex: Female

DRUGS (1)
  1. NEXPLANON [Suspect]
     Active Substance: ETONOGESTREL
     Dosage: 1 IMPLANT EVERY 3 YEARS
     Route: 059
     Dates: start: 20210413

REACTIONS (5)
  - Heavy menstrual bleeding [Not Recovered/Not Resolved]
  - Gait disturbance [Unknown]
  - Dysmenorrhoea [Unknown]
  - Abnormal menstrual clots [Unknown]
  - Weight decreased [Unknown]

NARRATIVE: CASE EVENT DATE: 20210401
